FAERS Safety Report 6739931-6 (Version None)
Quarter: 2010Q2

REPORT INFORMATION
  Report Type: 
  Country: None (occurrence: None)
  Receive Date: 20100525
  Receipt Date: 20100513
  Transmission Date: 20101027
  Serious: Yes (Death, Other)
  Sender: FDA-Public Use
  Company Number: US-PFIZER INC-2010037666

PATIENT
  Sex: Male
  Weight: 66.848 kg

DRUGS (1)
  1. SUTENT [Suspect]
     Indication: METASTATIC RENAL CELL CARCINOMA
     Dosage: 50 MG, 1X/DAY, CYCLE 4/2
     Dates: start: 20100224

REACTIONS (4)
  - DISEASE PROGRESSION [None]
  - IMPAIRED HEALING [None]
  - INTESTINAL PERFORATION [None]
  - METASTATIC RENAL CELL CARCINOMA [None]
